FAERS Safety Report 6589472-4 (Version None)
Quarter: 2010Q1

REPORT INFORMATION
  Report Type: 
  Country: None (occurrence: None)
  Receive Date: 20100218
  Receipt Date: 20100212
  Transmission Date: 20100710
  Serious: Yes (Hospitalization)
  Sender: FDA-Public Use
  Company Number: US-GILEAD-2010-0026894

PATIENT
  Sex: Female

DRUGS (15)
  1. LETAIRIS [Suspect]
     Indication: PULMONARY ARTERIAL HYPERTENSION
     Route: 048
     Dates: start: 20081111
  2. SIMVASTIN [Concomitant]
  3. OMEPRAZOLE [Concomitant]
  4. LEXAPRO [Concomitant]
  5. HUMALOG [Concomitant]
  6. REQUIP [Concomitant]
  7. XANAX [Concomitant]
  8. TOPAMAX [Concomitant]
  9. FLUTICASONE PROPIONATE [Concomitant]
  10. REVATIO [Concomitant]
  11. ALLEGRA D 24 HOUR [Concomitant]
  12. TRAMADOL [Concomitant]
  13. MOTRIN [Concomitant]
  14. CYPROHEPTAD [Concomitant]
  15. LYRICA [Concomitant]

REACTIONS (1)
  - SARCOIDOSIS [None]
